FAERS Safety Report 11370209 (Version 1)
Quarter: 2015Q3

REPORT INFORMATION
  Report Type: Spontaneous
  Country: JP (occurrence: JP)
  Receive Date: 20150812
  Receipt Date: 20150812
  Transmission Date: 20151125
  Serious: Yes (Death)
  Sender: FDA-Public Use
  Company Number: JP-JNJFOC-20150804808

PATIENT
  Age: 72 Year
  Sex: Female

DRUGS (3)
  1. DOXIL [Suspect]
     Active Substance: DOXORUBICIN HYDROCHLORIDE
     Indication: OVARIAN ENDOMETRIOID CARCINOMA
     Dosage: 2 YEARS 11 MONTHS
     Route: 042
  2. PACLITAXEL. [Suspect]
     Active Substance: PACLITAXEL
     Indication: OVARIAN ENDOMETRIOID CARCINOMA
     Dosage: 2 YEARS 11 MONTHS
     Route: 065
  3. CARBOPLATIN. [Concomitant]
     Active Substance: CARBOPLATIN
     Indication: OVARIAN ENDOMETRIOID CARCINOMA
     Dosage: 2 YEARS 11 MONTHS
     Route: 065

REACTIONS (2)
  - Myelodysplastic syndrome [Fatal]
  - Leukaemia [Fatal]
